FAERS Safety Report 16786182 (Version 6)
Quarter: 2020Q1

REPORT INFORMATION
  Report Type: Spontaneous
  Country: US (occurrence: US)
  Receive Date: 20190909
  Receipt Date: 20200306
  Transmission Date: 20200409
  Serious: No
  Sender: FDA-Public Use
  Company Number: US-PFIZER INC-2019385014

PATIENT
  Age: 69 Year
  Sex: Female
  Weight: 53 kg

DRUGS (32)
  1. LYRICA [Suspect]
     Active Substance: PREGABALIN
     Indication: FIBROMYALGIA
     Dosage: 150 MG, 3X/DAY
     Dates: start: 201810
  2. LYRICA [Suspect]
     Active Substance: PREGABALIN
     Indication: PARAESTHESIA
  3. CLARITIN [CLARITHROMYCIN] [Concomitant]
     Active Substance: CLARITHROMYCIN
     Dosage: 10 MG, 1X/DAY
  4. DICYCLOMINE [Concomitant]
     Active Substance: DICYCLOMINE HYDROCHLORIDE
     Dosage: 10 MG, UNK
  5. EZETIMIBE. [Concomitant]
     Active Substance: EZETIMIBE
     Dosage: 10 MG, 1X/DAY
     Dates: start: 2014
  6. HYCODAN [HYDROCODONE BITARTRATE] [Concomitant]
     Active Substance: HYDROCODONE BITARTRATE
     Dosage: 5 MG, AS NEEDED(Q4 PRN(AS NEEDED))
  7. LISINOPRIL HCTZ [Concomitant]
     Active Substance: HYDROCHLOROTHIAZIDE\LISINOPRIL
     Dosage: UNK UNK, 1X/DAY(20-25MG, 1QD(ONCE A DAY))
  8. LEVOTHYROXINE. [Concomitant]
     Active Substance: LEVOTHYROXINE
     Dosage: 75 MG, 1X/DAY
     Dates: start: 2011
  9. VITAMIN D3 [Concomitant]
     Active Substance: CHOLECALCIFEROL
     Dosage: UNK
     Dates: start: 2011
  10. LYRICA [Suspect]
     Active Substance: PREGABALIN
     Indication: CHRONIC FATIGUE SYNDROME
     Dosage: 450 MG, DAILY (ONE IN THE MORNING AND TWO AT NIGHT)
  11. CLOTRIMAZOLE. [Concomitant]
     Active Substance: CLOTRIMAZOLE
     Dosage: UNK
  12. COMPAZINE [PROCHLORPERAZINE EDISYLATE] [Concomitant]
     Active Substance: PROCHLORPERAZINE EDISYLATE
     Dosage: 25 MG, AS NEEDED(1 BID(TWICE A DAY), PRN( AS NEEDED))
  13. FLOVENT [Concomitant]
     Active Substance: FLUTICASONE PROPIONATE
     Dosage: UNK, 1X/DAY (220HFA)
     Dates: start: 2017
  14. HYCODAN [HYDROCODONE BITARTRATE] [Concomitant]
     Active Substance: HYDROCODONE BITARTRATE
     Dosage: 9.5 MG, AS NEEDED (Q4 PRN (AS NEEDED))
  15. IPRATROPIUM BROMIDE AND ALBUTEROL SULFATE [Concomitant]
     Active Substance: ALBUTEROL SULFATE\IPRATROPIUM BROMIDE
     Dosage: UNK (Q4)
  16. LISINOPRIL. [Concomitant]
     Active Substance: LISINOPRIL
     Indication: HYPERTENSION
     Dosage: 20 MG, 1X/DAY
     Dates: start: 2004
  17. TOPIRAMATE. [Concomitant]
     Active Substance: TOPIRAMATE
     Dosage: 50 MG, 3X/DAY
  18. ALBUTEROL [SALBUTAMOL] [Concomitant]
     Active Substance: ALBUTEROL
     Dosage: UNK UNK, AS NEEDED (2.5 MG/3 ML)
  19. MIRALAX [Concomitant]
     Active Substance: POLYETHYLENE GLYCOL 3350
     Dosage: UNK UNK, AS NEEDED
  20. NEXIUM I.V. [Concomitant]
     Active Substance: ESOMEPRAZOLE SODIUM
     Dosage: 40 MG, AS NEEDED(1 BID(TWICE A DAY))
  21. LYRICA [Suspect]
     Active Substance: PREGABALIN
     Indication: DIABETIC NEUROPATHY
     Dosage: UNK(300-450MG)
     Route: 048
     Dates: start: 2011
  22. HYOSCYAMINE. [Concomitant]
     Active Substance: HYOSCYAMINE
     Dosage: 0.125 MG, AS NEEDED
     Route: 060
  23. SUMATRIPTAN. [Concomitant]
     Active Substance: SUMATRIPTAN
     Dosage: 100 MG, AS NEEDED(PRN(AS NEEDED))
  24. BENZONATATE. [Concomitant]
     Active Substance: BENZONATATE
     Dosage: 200 MG, AS NEEDED(1TID(TWICE A DAY))
  25. FENOFIBRATE. [Concomitant]
     Active Substance: FENOFIBRATE
     Dosage: 100 MG, UNK
  26. NASONEX [Concomitant]
     Active Substance: MOMETASONE FUROATE
     Dosage: 100 UG, AS NEEDED(2 SPRAY QD(ONCE A DAY))
     Dates: start: 2008
  27. NOVOLOG [Concomitant]
     Active Substance: INSULIN ASPART
     Dosage: UNK, AS NEEDED (4 TO 8 UNITS PRN (AS NEEDED))
     Dates: start: 2009
  28. PREDNISONE. [Concomitant]
     Active Substance: PREDNISONE
     Dosage: 10 MG, UNK
  29. KLONOPIN [Concomitant]
     Active Substance: CLONAZEPAM
     Dosage: 1 MG, UNK(1-2HRS)
  30. LINZESS [Concomitant]
     Active Substance: LINACLOTIDE
     Dosage: 72 UG, 1X/DAY
  31. MAALOX [CALCIUM CARBONATE] [Concomitant]
     Active Substance: CALCIUM CARBONATE
     Dosage: 15 ML, AS NEEDED (QD (ONCE A DAY))
  32. MELATONIN [Concomitant]
     Active Substance: MELATONIN
     Dosage: 5 MG, 1X/DAY (1 HS (TAKE AT BEDTIME))

REACTIONS (3)
  - Therapeutic response unexpected [Unknown]
  - Pre-existing condition improved [Unknown]
  - Weight increased [Recovered/Resolved]

NARRATIVE: CASE EVENT DATE: 201810
